FAERS Safety Report 4626730-4 (Version None)
Quarter: 2005Q2

REPORT INFORMATION
  Report Type: 
  Country: None (occurrence: None)
  Receive Date: 20050401
  Receipt Date: 20050401
  Transmission Date: 20051028
  Serious: No
  Sender: FDA-Public Use
  Company Number: None

PATIENT
  Sex: Male
  Weight: 46.6 kg

DRUGS (1)
  1. 13-CIS-RETINOIC ACID [Suspect]
     Dosage: 80 MG/M2/DOSE BID PO ON DAYS 1-14 Q28D FOR 6 CYCLES
     Route: 048
     Dates: start: 20041122

REACTIONS (2)
  - NAUSEA [None]
  - VOMITING [None]
